FAERS Safety Report 10785310 (Version 1)
Quarter: 2015Q1

REPORT INFORMATION
  Report Type: Spontaneous
  Country: US (occurrence: None)
  Receive Date: 20150209
  Receipt Date: 20150209
  Transmission Date: 20150721
  Serious: No
  Sender: FDA-Public Use
  Company Number: 2015-00020

PATIENT
  Age: 23 Year
  Sex: Female
  Weight: 63.5 kg

DRUGS (2)
  1. ZICAM EXTREME CONGESTION RELIEF [Suspect]
     Active Substance: OXYMETAZOLINE HYDROCHLORIDE
     Indication: NASOPHARYNGITIS
     Dosage: 1 DOSE EACH NOSTRIL DAILY, 2X
     Route: 045
     Dates: start: 20150203, end: 20150204
  2. ZICAM EXTREME CONGESTION RELIEF [Suspect]
     Active Substance: OXYMETAZOLINE HYDROCHLORIDE
     Indication: PULMONARY CONGESTION
     Dosage: 1 DOSE EACH NOSTRIL DAILY, 2X
     Route: 045
     Dates: start: 20150203, end: 20150204

REACTIONS (1)
  - Ageusia [None]

NARRATIVE: CASE EVENT DATE: 20150204
